FAERS Safety Report 11398095 (Version 1)
Quarter: 2015Q3

REPORT INFORMATION
  Report Type: Spontaneous
  Country: GB (occurrence: GB)
  Receive Date: 20150820
  Receipt Date: 20150820
  Transmission Date: 20151125
  Serious: Yes (Hospitalization, Other)
  Sender: FDA-Public Use
  Company Number: GB-AMGEN-GBRSP2015081526

PATIENT
  Age: 41 Year
  Sex: Female

DRUGS (1)
  1. ENBREL [Suspect]
     Active Substance: ETANERCEPT
     Indication: RHEUMATOID ARTHRITIS
     Dosage: 50 MG, UNK
     Route: 065
     Dates: start: 20150623

REACTIONS (13)
  - Dyspnoea [Unknown]
  - Anxiety [Unknown]
  - Paraesthesia [Unknown]
  - Visual impairment [Unknown]
  - Arthropod bite [Unknown]
  - Chest pain [Unknown]
  - Hypertension [Unknown]
  - Malaise [Unknown]
  - Fatigue [Unknown]
  - Dizziness [Unknown]
  - Palpitations [Unknown]
  - Condition aggravated [Unknown]
  - Headache [Unknown]

NARRATIVE: CASE EVENT DATE: 20150803
